FAERS Safety Report 20256003 (Version 1)
Quarter: 2021Q4

REPORT INFORMATION
  Report Type: Spontaneous
  Country: FR (occurrence: FR)
  Receive Date: 20211230
  Receipt Date: 20211230
  Transmission Date: 20220303
  Serious: Yes (Other)
  Sender: FDA-Public Use
  Company Number: None

PATIENT
  Age: 56 Year
  Sex: Female

DRUGS (1)
  1. QUTENZA [Suspect]
     Active Substance: CAPSAICIN
     Indication: Pain
     Dosage: 1 DOSAGE FORM, ONCE
     Route: 003
     Dates: start: 20210707

REACTIONS (3)
  - Application site discolouration [Unknown]
  - Allodynia [Unknown]
  - Erythema [Unknown]

NARRATIVE: CASE EVENT DATE: 20210709
